FAERS Safety Report 10029026 (Version 3)
Quarter: 2014Q2

REPORT INFORMATION
  Report Type: Spontaneous
  Country: US (occurrence: US)
  Receive Date: 20140321
  Receipt Date: 20140407
  Transmission Date: 20141212
  Serious: Yes (Other)
  Sender: FDA-Public Use
  Company Number: US-MERCK-1403USA008429

PATIENT
  Sex: Male

DRUGS (2)
  1. ZETIA [Suspect]
     Route: 048
  2. MEVACOR TABLET [Suspect]
     Route: 048

REACTIONS (4)
  - Cardiac pacemaker insertion [Unknown]
  - Stent placement [Unknown]
  - Adverse event [Unknown]
  - Skin disorder [Unknown]
